FAERS Safety Report 6788108-7 (Version None)
Quarter: 2010Q2

REPORT INFORMATION
  Report Type: 
  Country: None (occurrence: None)
  Receive Date: 20100623
  Receipt Date: 20080128
  Transmission Date: 20101027
  Serious: Yes (Other)
  Sender: FDA-Public Use
  Company Number: US-PFIZER INC-2007083378

PATIENT
  Sex: Female
  Weight: 56.2 kg

DRUGS (1)
  1. XALATAN [Suspect]
     Indication: INTRAOCULAR PRESSURE INCREASED
     Dates: start: 20060501

REACTIONS (4)
  - DRY EYE [None]
  - HYPERSENSITIVITY [None]
  - PUNCTATE KERATITIS [None]
  - VISUAL IMPAIRMENT [None]
